FAERS Safety Report 13992283 (Version 4)
Quarter: 2022Q4

REPORT INFORMATION
  Report Type: Spontaneous
  Country: US (occurrence: US)
  Receive Date: 20170920
  Receipt Date: 20221110
  Transmission Date: 20230113
  Serious: No
  Sender: FDA-Public Use
  Company Number: US-JNJFOC-20170906272

PATIENT
  Age: 16 Year
  Sex: Male

DRUGS (9)
  1. RISPERDAL [Suspect]
     Active Substance: RISPERIDONE
     Indication: Oppositional defiant disorder
     Dosage: IN VARYING DOSE OF 0.5 MG TO 1 MG ONCE A DAY TO THRICE A DAY
     Route: 048
     Dates: start: 20050713, end: 20060321
  2. RISPERDAL [Suspect]
     Active Substance: RISPERIDONE
     Indication: Attention deficit hyperactivity disorder
  3. RISPERDAL [Suspect]
     Active Substance: RISPERIDONE
     Indication: Autism spectrum disorder
  4. RISPERDAL [Suspect]
     Active Substance: RISPERIDONE
     Indication: Agitation
  5. RISPERDAL [Suspect]
     Active Substance: RISPERIDONE
     Indication: Impulse-control disorder
  6. INVEGA [Suspect]
     Active Substance: PALIPERIDONE
     Indication: Autism spectrum disorder
     Route: 048
  7. INVEGA [Suspect]
     Active Substance: PALIPERIDONE
     Indication: Attention deficit hyperactivity disorder
     Route: 048
     Dates: start: 20150224, end: 20150608
  8. INVEGA [Suspect]
     Active Substance: PALIPERIDONE
     Indication: Oppositional defiant disorder
     Route: 048
  9. INVEGA [Suspect]
     Active Substance: PALIPERIDONE
     Indication: Impulse-control disorder

REACTIONS (2)
  - Gynaecomastia [Unknown]
  - Emotional distress [Unknown]

NARRATIVE: CASE EVENT DATE: 20140517
